FAERS Safety Report 9449914 (Version 2)
Quarter: 2013Q4

REPORT INFORMATION
  Report Type: Report from Study
  Country: CA (occurrence: CA)
  Receive Date: 20130809
  Receipt Date: 20131212
  Transmission Date: 20140711
  Serious: Yes (Life-Threatening, Hospitalization)
  Sender: FDA-Public Use
  Company Number: CA-UCBSA-093906

PATIENT
  Age: 67 Year
  Sex: Male
  Weight: 104 kg

DRUGS (8)
  1. CIMZIA [Suspect]
     Indication: RHEUMATOID ARTHRITIS
     Route: 058
     Dates: start: 201111, end: 201307
  2. CIMZIA [Suspect]
     Indication: RHEUMATOID ARTHRITIS
     Dosage: NO OF TAKES: Q2WEEK X 3
     Route: 058
     Dates: start: 20110811, end: 20110909
  3. TAMSULOSIN [Concomitant]
     Indication: BENIGN PROSTATIC HYPERPLASIA
     Route: 048
  4. NEXIUM [Concomitant]
     Indication: EPIGASTRIC DISCOMFORT
     Route: 048
  5. SYMBICORT INH [Concomitant]
     Indication: ASTHMA
     Dosage: DOSE: 2 PUFFS DAILY, INH
  6. VENTOLIN [Concomitant]
     Indication: ASTHMA
     Dosage: DOSE: 2 PUFFS PM, INH
  7. SPIRIVA [Concomitant]
     Indication: ASTHMA
     Dosage: DOSE: 2 PUFFS DAILY, INH
  8. LASIX [Concomitant]

REACTIONS (5)
  - Acute respiratory distress syndrome [Recovering/Resolving]
  - Chronic obstructive pulmonary disease [Unknown]
  - Interstitial lung disease [Unknown]
  - Respiratory tract infection [Unknown]
  - Inappropriate schedule of drug administration [Unknown]
